FAERS Safety Report 10682559 (Version 1)
Quarter: 2014Q4

REPORT INFORMATION
  Report Type: Spontaneous
  Country: US (occurrence: None)
  Receive Date: 20141209
  Receipt Date: 20141209
  Transmission Date: 20150529
  Serious: Yes (Hospitalization)
  Sender: FDA-Public Use
  Company Number: 398013

PATIENT
  Age: 63 Year
  Sex: Female
  Weight: 72.6 kg

DRUGS (3)
  1. NOVOLOG [Suspect]
     Active Substance: INSULIN ASPART
     Indication: TYPE 2 DIABETES MELLITUS
     Dosage: 20 UNITS, DAILY AT NIGHT
     Route: 058
     Dates: start: 2002, end: 20131215
  2. BYETTA [Concomitant]
     Active Substance: EXENATIDE
  3. METFORMIN [Concomitant]
     Active Substance: METFORMIN HYDROCHLORIDE

REACTIONS (1)
  - Blood glucose fluctuation [None]

NARRATIVE: CASE EVENT DATE: 201312
